FAERS Safety Report 13515471 (Version 2)
Quarter: 2017Q2

REPORT INFORMATION
  Report Type: Spontaneous
  Country: CH (occurrence: CH)
  Receive Date: 20170504
  Receipt Date: 20170607
  Transmission Date: 20170830
  Serious: Yes (Other)
  Sender: FDA-Public Use
  Company Number: PHHY2017CH063757

PATIENT
  Sex: Female

DRUGS (1)
  1. RITALIN [Suspect]
     Active Substance: METHYLPHENIDATE HYDROCHLORIDE
     Indication: PRODUCT USED FOR UNKNOWN INDICATION
     Dosage: 10 MG, UNK
     Route: 065

REACTIONS (9)
  - Nasal congestion [Unknown]
  - Alopecia [Unknown]
  - Eye pruritus [Unknown]
  - Poor peripheral circulation [Unknown]
  - Decreased appetite [Unknown]
  - Headache [Unknown]
  - Cardiac flutter [Unknown]
  - Eye pain [Unknown]
  - Pruritus [Unknown]
